FAERS Safety Report 9799554 (Version 1)
Quarter: 2014Q1

REPORT INFORMATION
  Report Type: Spontaneous
  Country: US (occurrence: US)
  Receive Date: 20140106
  Receipt Date: 20140106
  Transmission Date: 20141002
  Serious: Yes (Hospitalization)
  Sender: FDA-Public Use
  Company Number: US-GILEAD-2010-0030195

PATIENT
  Sex: Female
  Weight: 106.59 kg

DRUGS (22)
  1. LETAIRIS [Suspect]
     Indication: PULMONARY ARTERIAL HYPERTENSION
     Route: 048
     Dates: start: 20090225
  2. ADCIRCA [Concomitant]
  3. OXYGEN [Concomitant]
  4. XOPENEX [Concomitant]
  5. LASIX [Concomitant]
  6. HCTZ [Concomitant]
  7. CLONIDINE [Concomitant]
  8. ATACAND [Concomitant]
  9. LEVEMIR [Concomitant]
  10. NOVOLIN [Concomitant]
  11. CELLCEPT [Concomitant]
  12. PREDNISONE [Concomitant]
  13. NEXIUM [Concomitant]
  14. ALLOPURINOL [Concomitant]
  15. POTASSIUM CHLORIDE [Concomitant]
  16. CHROMIUM PICO [Concomitant]
  17. MEGA DOSE [Concomitant]
  18. VITAMIN D [Concomitant]
  19. GERITOL COMPLETE [Concomitant]
  20. RESTASIS [Concomitant]
  21. MUCINEX [Concomitant]
  22. TYLENOL P.M. [Concomitant]

REACTIONS (1)
  - Swelling [Unknown]
